FAERS Safety Report 8459409-1 (Version None)
Quarter: 2012Q2

REPORT INFORMATION
  Report Type: 
  Country: None (occurrence: None)
  Receive Date: 20120622
  Receipt Date: 20120613
  Transmission Date: 20120825
  Serious: Yes (Death, Hospitalization, Other)
  Sender: FDA-Public Use
  Company Number: DE-JNJFOC-20120605766

PATIENT
  Age: 81 Year
  Sex: Male

DRUGS (14)
  1. PANTOPRAZOLE [Concomitant]
     Route: 048
     Dates: start: 20100101, end: 20120511
  2. METHIZOL [Concomitant]
     Route: 048
     Dates: end: 20120511
  3. PRAVASTATIN [Concomitant]
     Route: 048
     Dates: start: 20110101, end: 20120511
  4. PROCHLORPERAZINE [Concomitant]
     Route: 048
     Dates: start: 20100101, end: 20120511
  5. RISPERDAL [Suspect]
     Indication: PRODUCT USED FOR UNKNOWN INDICATION
     Route: 048
  6. AXURA [Concomitant]
     Route: 048
     Dates: start: 20110101, end: 20120511
  7. AN UNKNOWN MEDICATION [Concomitant]
     Route: 065
     Dates: start: 20120509, end: 20120510
  8. CALCIUM [Concomitant]
     Route: 048
     Dates: start: 20110101, end: 20120511
  9. MESALAZIN [Concomitant]
     Route: 048
     Dates: start: 20100101, end: 20120511
  10. EMBOLEX [Concomitant]
     Route: 058
     Dates: start: 20120509, end: 20120511
  11. RISPERDAL [Suspect]
     Route: 048
     Dates: start: 20120509, end: 20120511
  12. TORSEMIDE [Concomitant]
     Route: 048
     Dates: start: 20100101, end: 20120511
  13. DIPIPERON [Suspect]
     Indication: PRODUCT USED FOR UNKNOWN INDICATION
     Route: 048
     Dates: start: 20120509, end: 20120511
  14. PREDNISOLONE [Concomitant]
     Route: 048
     Dates: start: 20100101, end: 20120511

REACTIONS (8)
  - RESTLESSNESS [None]
  - DRUG INEFFECTIVE [None]
  - CONFUSIONAL STATE [None]
  - CARDIOMEGALY [None]
  - BLOOD PRESSURE DECREASED [None]
  - SUDDEN DEATH [None]
  - GENERAL PHYSICAL HEALTH DETERIORATION [None]
  - SCREAMING [None]
